FAERS Safety Report 9927738 (Version 1)
Quarter: 2014Q1

REPORT INFORMATION
  Report Type: Spontaneous
  Country: US (occurrence: US)
  Receive Date: 20140227
  Receipt Date: 20140227
  Transmission Date: 20141002
  Serious: No
  Sender: FDA-Public Use
  Company Number: US-009507513-1402USA009001

PATIENT
  Sex: Female

DRUGS (1)
  1. IMPLANON [Suspect]
     Dosage: IMPLANT LEFT ARM
     Route: 058
     Dates: start: 20130402

REACTIONS (3)
  - Breast pain [Unknown]
  - Abdominal pain upper [Unknown]
  - Pain in extremity [Unknown]
